FAERS Safety Report 12126762 (Version 1)
Quarter: 2016Q1

REPORT INFORMATION
  Report Type: Spontaneous
  Country: TN (occurrence: TN)
  Receive Date: 20160229
  Receipt Date: 20160229
  Transmission Date: 20160526
  Serious: Yes (Hospitalization)
  Sender: FDA-Public Use
  Company Number: TN-MYLANLABS-2016M1008259

PATIENT

DRUGS (7)
  1. HYDROCORTISONE HEMISUCCINATE [Concomitant]
     Active Substance: HYDROCORTISONE HEMISUCCINATE
     Indication: ACUTE RESPIRATORY FAILURE
     Dosage: 100 MG EVERY FOUR HOURS
     Route: 065
  2. SALBUTAMOL [Suspect]
     Active Substance: ALBUTEROL
     Dosage: 2 MG/H
     Route: 042
  3. FENTANYL. [Concomitant]
     Active Substance: FENTANYL
     Route: 065
  4. SALBUTAMOL [Suspect]
     Active Substance: ALBUTEROL
     Indication: ACUTE RESPIRATORY FAILURE
     Dosage: ONE TABLET EVERY 15 MINUTES
     Route: 055
  5. MIDAZOLAM [Concomitant]
     Active Substance: MIDAZOLAM\MIDAZOLAM HYDROCHLORIDE
     Route: 065
  6. CISATRACURIUM BESILATE [Concomitant]
     Active Substance: CISATRACURIUM BESYLATE
     Indication: ANAESTHESIA
     Route: 065
  7. LEVOFLOXACIN. [Concomitant]
     Active Substance: LEVOFLOXACIN
     Indication: ACUTE RESPIRATORY FAILURE
     Route: 065

REACTIONS (2)
  - Myocarditis [Recovering/Resolving]
  - Acute pulmonary oedema [Recovering/Resolving]
